FAERS Safety Report 9245097 (Version 3)
Quarter: 2013Q4

REPORT INFORMATION
  Report Type: Spontaneous
  Country: FR (occurrence: FR)
  Receive Date: 20130422
  Receipt Date: 20131231
  Transmission Date: 20140711
  Serious: Yes (Hospitalization, Other)
  Sender: FDA-Public Use
  Company Number: FR-PFIZER INC-2013122423

PATIENT
  Age: 7 Year
  Sex: Male
  Weight: 25 kg

DRUGS (19)
  1. EUPANTOL [Suspect]
     Indication: PROPHYLAXIS AGAINST GASTROINTESTINAL ULCER
     Dosage: 30 MG, DAILY
     Route: 042
     Dates: start: 20130123, end: 20130131
  2. EUPANTOL [Suspect]
     Dosage: UNK
     Route: 065
     Dates: start: 201308
  3. EUPANTOL [Suspect]
     Dosage: UNK
     Route: 065
     Dates: start: 201309
  4. EUPANTOL [Suspect]
     Dosage: UNK
     Route: 065
     Dates: start: 201310
  5. METHYLPREDNISOLONE [Suspect]
     Indication: BURKITT^S LYMPHOMA
     Dosage: 60 MG, DAILY
     Route: 065
     Dates: start: 20121215, end: 20121221
  6. METHYLPREDNISOLONE [Suspect]
     Dosage: 45 MG, DAILY
     Route: 065
     Dates: start: 20121222, end: 20121226
  7. METHYLPREDNISOLONE [Suspect]
     Dosage: 25 MG, DAILY
     Route: 065
     Dates: start: 20121227, end: 20121227
  8. METHYLPREDNISOLONE [Suspect]
     Dosage: UNK
     Route: 065
     Dates: start: 201309, end: 201309
  9. DOXORUBICIN HCL [Suspect]
     Indication: BURKITT^S LYMPHOMA
     Dosage: 54 MG, 1X/DAY, (54 MG,1 IN 1 DEPENDING ON CYCLE, 2 CURES)
     Route: 042
     Dates: start: 20121223, end: 20130110
  10. VANCOMYCIN [Suspect]
     Indication: PYREXIA
     Dosage: 1400 MG, 1X/DAY (ONCE IN 24 HOURS)
     Route: 042
     Dates: start: 20130120, end: 20130129
  11. VANCOMYCIN [Suspect]
     Indication: FEBRILE BONE MARROW APLASIA
     Dosage: UNK
     Route: 065
     Dates: start: 201309
  12. VANCOMYCIN [Suspect]
     Dosage: UNK
     Route: 065
     Dates: start: 201310
  13. FLAGYL [Suspect]
     Indication: PYREXIA
     Dosage: 200 MG, 3X/DAY (1 IN 8 HOURS)
     Route: 042
     Dates: start: 20130124, end: 20130128
  14. FLAGYL [Suspect]
     Indication: DIARRHOEA
     Dosage: UNK
     Dates: start: 201308
  15. ZOVIRAX [Suspect]
     Indication: PYREXIA
     Dosage: 430 MG, 3X/DAY (1 IN 8 HOURS)
     Route: 042
     Dates: start: 20130122, end: 20130129
  16. VINCRISTINE [Concomitant]
     Indication: BURKITT^S LYMPHOMA
     Dosage: UNK
     Dates: start: 20121215
  17. ENDOXAN [Concomitant]
     Indication: BURKITT^S LYMPHOMA
     Dosage: UNK
     Dates: start: 20121215
  18. HYDROCORTISONE HEMISUCCINATE [Concomitant]
     Indication: BURKITT^S LYMPHOMA
     Dosage: UNK
     Route: 037
     Dates: start: 20121215
  19. METHOTREXATE [Concomitant]
     Indication: BURKITT^S LYMPHOMA
     Dosage: UNK
     Route: 037
     Dates: start: 20121215

REACTIONS (3)
  - Off label use [Recovered/Resolved]
  - Pancreatitis [Recovered/Resolved]
  - Lipase increased [Recovered/Resolved]
